FAERS Safety Report 5515883-1 (Version None)
Quarter: 2007Q4

REPORT INFORMATION
  Report Type: 
  Country: None (occurrence: None)
  Receive Date: 20071109
  Receipt Date: 20071029
  Transmission Date: 20080405
  Serious: Yes (Death)
  Sender: FDA-Public Use
  Company Number: GXKR2007IT09326

PATIENT
  Age: 55 Year
  Sex: Male

DRUGS (5)
  1. CISPLATIN [Suspect]
     Indication: SMALL CELL LUNG CANCER STAGE UNSPECIFIED
     Dosage: 4 CYCLES, 1 CYCLE EVERY 28 DAYS, 60 MG/M2 ON DAY 1 EVERY 28 DAYS, 2 CYCLES
     Dates: start: 20040101
  2. ETOPOSIDE [Suspect]
     Indication: SMALL CELL LUNG CANCER STAGE UNSPECIFIED
     Dosage: 4 CYCLES, 1 CYCLE  EVERY 28 DAYS, 120 MG/M2, DAY 1-3 EVERY 28 DAYS, 2 CYCLES
     Dates: start: 20040101
  3. DEXAMETHASONE [Suspect]
     Indication: PROPHYLAXIS
     Dosage: 8 MG, DAILY, INTRAMUSCULAR
     Route: 030
  4. IRRADIATION(NO INGREDIENTS/SUBSTANCES) [Suspect]
     Indication: SMALL CELL LUNG CANCER STAGE UNSPECIFIED
     Dosage: TOTAL 36 GY IN 2 GY DAILY FRACTIONS
  5. RADIOTHERAPY (NO INGREDIENTS/SUBSTANCES) [Concomitant]

REACTIONS (12)
  - BRAIN OEDEMA [None]
  - CEREBRAL ATROPHY [None]
  - CEREBRAL HAEMORRHAGE [None]
  - COMA [None]
  - ENCEPHALITIS HERPES [None]
  - HYPOGAMMAGLOBULINAEMIA [None]
  - IMMUNOSUPPRESSION [None]
  - LEUKOCYTOSIS [None]
  - LYMPHOPENIA [None]
  - NASOPHARYNGITIS [None]
  - NO THERAPEUTIC RESPONSE [None]
  - TREMOR [None]
